FAERS Safety Report 24381978 (Version 2)
Quarter: 2024Q4

REPORT INFORMATION
  Report Type: Spontaneous
  Country: US (occurrence: US)
  Receive Date: 20241001
  Receipt Date: 20241021
  Transmission Date: 20250115
  Serious: Yes (Hospitalization)
  Sender: ELI LILLY AND COMPANY
  Company Number: US-ELI_LILLY_AND_COMPANY-US202410000224

PATIENT
  Age: 88 Year

DRUGS (1)
  1. FORTEO [Suspect]
     Active Substance: TERIPARATIDE
     Indication: Product used for unknown indication
     Dosage: UNK UNK, UNKNOWN
     Route: 048
     Dates: start: 20240926

REACTIONS (8)
  - Cerebrovascular accident [Unknown]
  - Incorrect route of product administration [Unknown]
  - Somnolence [Unknown]
  - Fatigue [Unknown]
  - Gait inability [Unknown]
  - Asthenia [Unknown]
  - Headache [Recovered/Resolved]
  - Pneumonia [Unknown]

NARRATIVE: CASE EVENT DATE: 20240926
